FAERS Safety Report 19198918 (Version 2)
Quarter: 2021Q2

REPORT INFORMATION
  Report Type: Report from Study
  Country: HU (occurrence: HU)
  Receive Date: 20210430
  Receipt Date: 20210604
  Transmission Date: 20210717
  Serious: No
  Sender: FDA-Public Use
  Company Number: NVSC2021HU093050

PATIENT

DRUGS (4)
  1. DABRAFENIB [Suspect]
     Active Substance: DABRAFENIB
     Indication: NEOPLASM
     Dosage: UNK
     Route: 048
  2. DABRAFENIB [Suspect]
     Active Substance: DABRAFENIB
     Indication: ARTERIOVENOUS MALFORMATION
  3. TRAMETINIB [Suspect]
     Active Substance: TRAMETINIB
     Indication: ARTERIOVENOUS MALFORMATION
     Dosage: 0.025 MG/KG, QD (IN EVENING)
     Route: 048
     Dates: start: 20210409
  4. TRAMETINIB [Suspect]
     Active Substance: TRAMETINIB
     Indication: NEOPLASM

REACTIONS (2)
  - Nausea [Recovering/Resolving]
  - Abdominal pain [Recovering/Resolving]
